FAERS Safety Report 5255292-6 (Version None)
Quarter: 2007Q1

REPORT INFORMATION
  Report Type: 
  Country: None (occurrence: None)
  Receive Date: 20070305
  Receipt Date: 20070228
  Transmission Date: 20070707
  Serious: Yes (Death, Hospitalization)
  Sender: FDA-Public Use
  Company Number: US-GLAXOSMITHKLINE-A0568677A

PATIENT
  Age: 51 Year
  Sex: Female
  Weight: 62.7 kg

DRUGS (3)
  1. PAXIL CR [Suspect]
     Indication: DEPRESSION
     Dosage: 25MG IN THE MORNING
     Route: 048
     Dates: start: 20030201
  2. SEROQUEL [Concomitant]
     Dosage: 25MG TWICE PER DAY
     Dates: start: 20030501, end: 20030701
  3. TRAZODONE HCL [Concomitant]
     Dates: start: 20030701

REACTIONS (19)
  - ABNORMAL BEHAVIOUR [None]
  - ADJUSTMENT DISORDER [None]
  - AGGRESSION [None]
  - AGITATION [None]
  - ANGER [None]
  - APPETITE DISORDER [None]
  - ASPHYXIA [None]
  - COMPLETED SUICIDE [None]
  - CRYING [None]
  - DISSOCIATION [None]
  - FEELING ABNORMAL [None]
  - FEELINGS OF WORTHLESSNESS [None]
  - HOMICIDAL IDEATION [None]
  - INSOMNIA [None]
  - LOSS OF CONSCIOUSNESS [None]
  - MENTAL DISORDER [None]
  - SUICIDAL IDEATION [None]
  - SUICIDE ATTEMPT [None]
  - TREMOR [None]
